FAERS Safety Report 8626847 (Version 5)
Quarter: 2013Q4

REPORT INFORMATION
  Report Type: Spontaneous
  Country: US (occurrence: US)
  Receive Date: 20120620
  Receipt Date: 20131129
  Transmission Date: 20140711
  Serious: Yes (Hospitalization, Other)
  Sender: FDA-Public Use
  Company Number: US-PFIZER INC-2012145080

PATIENT
  Age: 52 Year
  Sex: Male
  Weight: 90.7 kg

DRUGS (3)
  1. DILANTIN [Suspect]
     Indication: CONVULSION
     Dosage: UNK
     Route: 048
     Dates: start: 20100826, end: 20100826
  2. DILANTIN-125 [Suspect]
     Indication: CONVULSION
     Dosage: UNK,
     Dates: end: 20100829
  3. ZOLPIDEM [Concomitant]
     Indication: CARDIAC DISORDER
     Dosage: 10 MG, UNK

REACTIONS (10)
  - Circumstance or information capable of leading to medication error [Unknown]
  - Stevens-Johnson syndrome [Recovered/Resolved]
  - Haemorrhage [Recovered/Resolved]
  - Cerebrovascular accident [Not Recovered/Not Resolved]
  - Asthenia [Not Recovered/Not Resolved]
  - Skin disorder [Recovered/Resolved]
  - Pigmentation disorder [Recovered/Resolved]
  - Malaise [Recovered/Resolved]
  - Pain [Recovered/Resolved]
  - Burning sensation [Recovered/Resolved]
